FAERS Safety Report 24312223 (Version 2)
Quarter: 2024Q3

REPORT INFORMATION
  Report Type: Spontaneous
  Country: US (occurrence: US)
  Receive Date: 20240912
  Receipt Date: 20240913
  Transmission Date: 20241017
  Serious: No
  Sender: PFIZER
  Company Number: US-PFIZER INC-202400254733

PATIENT
  Age: 84 Year
  Sex: Male
  Weight: 97.52 kg

DRUGS (7)
  1. PAXLOVID [Suspect]
     Active Substance: NIRMATRELVIR\RITONAVIR
     Indication: COVID-19 treatment
     Dosage: [NIRMATRELVIR 150 MG]/[RITONAVIR 100 MG]; 2X/DAY
     Route: 048
     Dates: start: 20240910
  2. SILODOSIN [Concomitant]
     Active Substance: SILODOSIN
     Indication: Prostatic disorder
     Dosage: 8 MG, 1X/DAY (AT NIGHT)
  3. ROSUVASTATIN [Concomitant]
     Active Substance: ROSUVASTATIN\ROSUVASTATIN CALCIUM
     Indication: Blood cholesterol abnormal
     Dosage: 5 MG, 1X/DAY (AT NIGHT)
  4. MYRBETRIQ [Concomitant]
     Active Substance: MIRABEGRON
     Indication: Cardiac disorder
     Dosage: 25 MG, 1X/DAY (AT NIGHT)
  5. LISINOPRIL [Concomitant]
     Active Substance: LISINOPRIL
     Indication: Atrial fibrillation
     Dosage: 10 MG, 1X/DAY (AT NIGHT)
  6. METOPROLOL [Concomitant]
     Active Substance: METOPROLOL
     Indication: Hypertension
     Dosage: 50 MG, 2X/DAY
  7. XARELTO [Concomitant]
     Active Substance: RIVAROXABAN
     Indication: Anticoagulant therapy
     Dosage: 20 MG, 1X/DAY (AROUND 3 IN THE AFTERNOON)

REACTIONS (4)
  - Dysphonia [Unknown]
  - Diarrhoea [Not Recovered/Not Resolved]
  - Headache [Unknown]
  - Oropharyngeal pain [Not Recovered/Not Resolved]

NARRATIVE: CASE EVENT DATE: 20240910
